FAERS Safety Report 13075379 (Version 1)
Quarter: 2016Q4

REPORT INFORMATION
  Report Type: Report from Study
  Country: JP (occurrence: JP)
  Receive Date: 20161230
  Receipt Date: 20161230
  Transmission Date: 20170207
  Serious: Yes (Life-Threatening, Hospitalization, Other)
  Sender: FDA-Public Use
  Company Number: JP-GLAXOSMITHKLINE-JP2016JPN058782

PATIENT
  Age: 14 Year
  Sex: Female
  Weight: 44 kg

DRUGS (20)
  1. WARFARIN (JAPANESE TRADENAME) [Concomitant]
     Indication: PULMONARY ARTERIAL HYPERTENSION
     Dosage: UNK
  2. CLARITIN [Concomitant]
     Active Substance: LORATADINE
     Dosage: UNK
     Dates: start: 20140424, end: 20150606
  3. FUROSEMIDE. [Concomitant]
     Active Substance: FUROSEMIDE
     Dosage: UNK
  4. AMBRISENTAN [Suspect]
     Active Substance: AMBRISENTAN
     Dosage: 7.5 MG, QD
     Route: 048
     Dates: start: 20150724
  5. AMBRISENTAN [Suspect]
     Active Substance: AMBRISENTAN
     Dosage: 2.5 MG, QD
     Route: 048
     Dates: start: 20140110, end: 20140303
  6. FLOLAN [Suspect]
     Active Substance: EPOPROSTENOL SODIUM
     Dosage: UNK
     Route: 042
  7. SINGULAIR TABLETS [Concomitant]
     Dosage: UNK
  8. AMBRISENTAN [Suspect]
     Active Substance: AMBRISENTAN
     Indication: PULMONARY ARTERIAL HYPERTENSION
     Dosage: 1.25 MG, QD
     Route: 048
     Dates: start: 20131109, end: 20140119
  9. AMBRISENTAN [Suspect]
     Active Substance: AMBRISENTAN
     Dosage: 3.3 MG, QD
     Route: 048
     Dates: start: 20140304, end: 20150615
  10. UROKINASE [Suspect]
     Active Substance: UROKINASE
     Dosage: UNK
     Route: 042
     Dates: start: 20140124, end: 20140124
  11. ALDACTONE A [Concomitant]
     Active Substance: SPIRONOLACTONE
     Dosage: UNK
  12. FERROMIA (JAPAN) [Concomitant]
     Dosage: UNK
  13. ADCIRCA [Concomitant]
     Active Substance: TADALAFIL
     Indication: PULMONARY ARTERIAL HYPERTENSION
     Dosage: UNK
     Dates: start: 20140405
  14. AMBRISENTAN [Suspect]
     Active Substance: AMBRISENTAN
     Dosage: UNK
  15. SERETIDE [Concomitant]
     Active Substance: FLUTICASONE PROPIONATE\SALMETEROL XINAFOATE
     Dosage: UNK
  16. FLUTIDE DISKUS [Concomitant]
     Active Substance: FLUTICASONE PROPIONATE
     Dosage: UNK
  17. BAYASPIRIN [Concomitant]
     Active Substance: ASPIRIN
     Indication: PULMONARY ARTERIAL HYPERTENSION
     Dosage: UNK
  18. AMBRISENTAN [Suspect]
     Active Substance: AMBRISENTAN
     Dosage: 5 MG, QD
     Route: 048
     Dates: start: 20150616, end: 20150723
  19. REVATIO [Concomitant]
     Active Substance: SILDENAFIL CITRATE
     Indication: PULMONARY ARTERIAL HYPERTENSION
     Dosage: UNK
     Dates: end: 20140404
  20. FLOLAN [Suspect]
     Active Substance: EPOPROSTENOL SODIUM
     Indication: PULMONARY ARTERIAL HYPERTENSION
     Dosage: UNK
     Route: 042

REACTIONS (10)
  - Device related infection [Recovered/Resolved]
  - Pulmonary hypertension [Recovered/Resolved]
  - Abdominal pain [Recovered/Resolved]
  - Bacteraemia [Recovered/Resolved]
  - Diarrhoea [Recovered/Resolved]
  - Device related infection [Recovered/Resolved]
  - Device occlusion [Recovered/Resolved]
  - Device issue [Recovered/Resolved]
  - Herpes simplex [Recovered/Resolved]
  - Conjunctivitis allergic [Recovering/Resolving]

NARRATIVE: CASE EVENT DATE: 20140124
